FAERS Safety Report 5240020-0 (Version None)
Quarter: 2007Q1

REPORT INFORMATION
  Report Type: 
  Country: None (occurrence: None)
  Receive Date: 20070216
  Receipt Date: 20070207
  Transmission Date: 20070707
  Serious: Yes (Hospitalization)
  Sender: FDA-Public Use
  Company Number: JP-PFIZER INC-2007006702

PATIENT
  Sex: Male
  Weight: 12.5 kg

DRUGS (13)
  1. SILDENAFIL (PAH) [Suspect]
     Indication: PULMONARY HYPERTENSION
     Route: 048
  2. FUROSEMIDE [Concomitant]
     Route: 048
  3. ALDACTONE [Concomitant]
     Route: 048
  4. PROCYLIN [Concomitant]
     Route: 048
  5. ANGINAL [Concomitant]
     Route: 048
  6. TRACLEER [Concomitant]
     Route: 048
  7. WARFARIN SODIUM [Concomitant]
     Route: 048
  8. FERROMIA [Concomitant]
     Route: 048
  9. ONON [Concomitant]
     Route: 048
  10. MUCODYNE [Concomitant]
     Route: 048
  11. AMBROXOL HYDROCHLORIDE [Concomitant]
     Route: 048
  12. ASPARA [Concomitant]
     Route: 048
  13. ASTOMIN [Concomitant]
     Route: 048

REACTIONS (3)
  - LEUKOPENIA [None]
  - PNEUMONIA [None]
  - THROMBOCYTOPENIA [None]
